FAERS Safety Report 13207202 (Version 1)
Quarter: 2017Q1

REPORT INFORMATION
  Report Type: Spontaneous
  Country: US (occurrence: US)
  Receive Date: 20170209
  Receipt Date: 20170209
  Transmission Date: 20170428
  Serious: Yes (Other)
  Sender: FDA-Public Use
  Company Number: None

PATIENT
  Age: 74 Year
  Sex: Male
  Weight: 82 kg

DRUGS (2)
  1. PHENYTOIN ORAL SUSPENSION [Suspect]
     Active Substance: PHENYTOIN
     Indication: SEIZURE
     Route: 048
     Dates: start: 20161231, end: 20170121
  2. PHENYTOIN ORAL SUSPENSION [Suspect]
     Active Substance: PHENYTOIN
     Indication: SEIZURE
     Route: 048
     Dates: start: 20161231, end: 20170121

REACTIONS (10)
  - Respiratory failure [None]
  - Tachypnoea [None]
  - Vomiting [None]
  - Enterobacter test positive [None]
  - Grunting [None]
  - Burkholderia test positive [None]
  - Pneumonia klebsiella [None]
  - Product contamination microbial [None]
  - Product quality issue [None]
  - Sputum culture positive [None]

NARRATIVE: CASE EVENT DATE: 20170119
